FAERS Safety Report 4606608-2 (Version None)
Quarter: 2005Q2

REPORT INFORMATION
  Report Type: 
  Country: None (occurrence: None)
  Receive Date: 20050223
  Receipt Date: 20040607
  Transmission Date: 20051028
  Serious: Yes (Disabling)
  Sender: FDA-Public Use
  Company Number: WAES 0406USA00972

PATIENT
  Sex: Female

DRUGS (1)
  1. ZOCOR [Suspect]
     Indication: HYPERCHOLESTEROLAEMIA
     Dosage: PO
     Route: 048
     Dates: start: 20031101, end: 20031101

REACTIONS (2)
  - ARTHRALGIA [None]
  - MYALGIA [None]
